FAERS Safety Report 10994773 (Version 1)
Quarter: 2015Q2

REPORT INFORMATION
  Report Type: Spontaneous
  Country: US (occurrence: US)
  Receive Date: 20150407
  Receipt Date: 20150407
  Transmission Date: 20150821
  Serious: Yes (Hospitalization)
  Sender: FDA-Public Use
  Company Number: PHHY2015US040722

PATIENT
  Sex: Female
  Weight: 1.38 kg

DRUGS (6)
  1. IODINE [Concomitant]
     Active Substance: IODINE
     Indication: HYPERTHYROIDISM
     Dosage: 8 MG, EVERY 8 HOURS
     Route: 065
  2. CAFFEINE CITRATE. [Concomitant]
     Active Substance: CAFFEINE CITRATE
     Indication: APNOEA
     Route: 065
  3. ATENOLOL. [Concomitant]
     Active Substance: ATENOLOL
     Indication: PRODUCT USED FOR UNKNOWN INDICATION
     Dosage: 1 MG/KG, ONCE DAILY
     Route: 065
  4. LEVOTHYROXINE [Concomitant]
     Active Substance: LEVOTHYROXINE
     Indication: HYPERTHYROIDISM
     Dosage: 25 MCG/ML, DAILY
     Route: 048
  5. PROPRANOLOL [Concomitant]
     Active Substance: PROPRANOLOL\PROPRANOLOL HYDROCHLORIDE
     Indication: HYPERTHYROIDISM
     Dosage: 1.5 MG/KG, QD
     Route: 065
  6. THIAMAZOLE [Suspect]
     Active Substance: METHIMAZOLE
     Indication: HYPERTHYROIDISM
     Dosage: 1 MG/KG, QD, 3 DIVIDED DOSE
     Route: 065

REACTIONS (1)
  - Neutropenia [Recovered/Resolved with Sequelae]
